FAERS Safety Report 9713681 (Version 1)
Quarter: 2013Q4

REPORT INFORMATION
  Report Type: Spontaneous
  Country: US (occurrence: None)
  Receive Date: 20131122
  Receipt Date: 20131122
  Transmission Date: 20140711
  Serious: No
  Sender: FDA-Public Use
  Company Number: ACET20130034

PATIENT
  Age: 50 Year
  Sex: Female

DRUGS (1)
  1. Q-PAP [Suspect]
     Indication: PRODUCT USED FOR UNKNOWN INDICATION

REACTIONS (9)
  - Metabolic acidosis [None]
  - Hyperammonaemia [None]
  - Mental status changes [None]
  - Vomiting [None]
  - Hypophagia [None]
  - Somnolence [None]
  - Tachypnoea [None]
  - Mucosal dryness [None]
  - Haemodialysis [None]
